FAERS Safety Report 5913717-4 (Version None)
Quarter: 2008Q4

REPORT INFORMATION
  Report Type: 
  Country: None (occurrence: None)
  Receive Date: 20081007
  Receipt Date: 20081002
  Transmission Date: 20090506
  Serious: Yes (Hospitalization)
  Sender: FDA-Public Use
  Company Number: APP200800946

PATIENT
  Age: 51 Year
  Sex: Female

DRUGS (5)
  1. HEPARIN SODIUM INJECTION [Suspect]
     Indication: ACUTE MYOCARDIAL INFARCTION
     Dosage: ONCE, INTRAVENOUS BOLUS
     Route: 040
     Dates: start: 20080520
  2. ABCIXIMAB (ABCIXIMAB) [Concomitant]
     Indication: ACUTE MYOCARDIAL INFARCTION
     Dosage: 0.25 MG/KG, ONCE, INTRAVENOUS; 0.125 UG/KG, 1 IN 1 MIN, INTRAVENOUS
     Route: 042
     Dates: start: 20080520, end: 20080520
  3. ABCIXIMAB (ABCIXIMAB) [Concomitant]
     Indication: PERCUTANEOUS CORONARY INTERVENTION
     Dosage: 0.25 MG/KG, ONCE, INTRAVENOUS; 0.125 UG/KG, 1 IN 1 MIN, INTRAVENOUS
     Route: 042
     Dates: start: 20080520, end: 20080520
  4. ABCIXIMAB (ABCIXIMAB) [Concomitant]
     Indication: ACUTE MYOCARDIAL INFARCTION
     Dosage: 0.25 MG/KG, ONCE, INTRAVENOUS; 0.125 UG/KG, 1 IN 1 MIN, INTRAVENOUS
     Route: 042
     Dates: start: 20080520, end: 20080520
  5. ABCIXIMAB (ABCIXIMAB) [Concomitant]
     Indication: PERCUTANEOUS CORONARY INTERVENTION
     Dosage: 0.25 MG/KG, ONCE, INTRAVENOUS; 0.125 UG/KG, 1 IN 1 MIN, INTRAVENOUS
     Route: 042
     Dates: start: 20080520, end: 20080520

REACTIONS (1)
  - INTRAVENTRICULAR HAEMORRHAGE [None]
